FAERS Safety Report 15322305 (Version 1)
Quarter: 2018Q3

REPORT INFORMATION
  Report Type: Report from Study
  Country: FR (occurrence: FR)
  Receive Date: 20180827
  Receipt Date: 20180827
  Transmission Date: 20181010
  Serious: Yes (Other)
  Sender: FDA-Public Use
  Company Number: PHHY2018FR075910

PATIENT
  Age: 6 Year
  Sex: Female

DRUGS (1)
  1. OMNITROPE [Suspect]
     Active Substance: SOMATROPIN
     Indication: PRODUCT USED FOR UNKNOWN INDICATION
     Dosage: 0.5 MG, UNK
     Route: 058

REACTIONS (3)
  - Headache [Unknown]
  - Papilloedema [Unknown]
  - Dizziness [Unknown]

NARRATIVE: CASE EVENT DATE: 20180809
